FAERS Safety Report 22268532 (Version 1)
Quarter: 2023Q2

REPORT INFORMATION
  Report Type: Spontaneous
  Country: CA (occurrence: None)
  Receive Date: 20230430
  Receipt Date: 20230430
  Transmission Date: 20230721
  Serious: Yes (Other)
  Sender: FDA-Public Use
  Company Number: CA-ROCHE-3337198

PATIENT
  Sex: Male

DRUGS (1)
  1. OCREVUS [Suspect]
     Active Substance: OCRELIZUMAB
     Indication: Product used for unknown indication
     Dosage: RECEIVED 600 MG MAINTENANCE DOSE ON 21/APR/2023 (LOT NUMBER: H0060B27, EXPIRY DATE: 31/DEC/2023)
     Route: 065

REACTIONS (1)
  - Pneumonia [Unknown]
